FAERS Safety Report 12785080 (Version 1)
Quarter: 2016Q3

REPORT INFORMATION
  Report Type: Report from Study
  Country: US (occurrence: US)
  Receive Date: 20160927
  Receipt Date: 20160927
  Transmission Date: 20161109
  Serious: Yes (Other)
  Sender: FDA-Public Use
  Company Number: US-AMGEN-USASL2016127212

PATIENT
  Age: 67 Year
  Sex: Female

DRUGS (1)
  1. REPATHA [Suspect]
     Active Substance: EVOLOCUMAB
     Indication: TYPE IIA HYPERLIPIDAEMIA
     Dosage: 140 MG, Q2WK
     Route: 065
     Dates: start: 20160125

REACTIONS (6)
  - Surgery [Unknown]
  - Skin discolouration [Unknown]
  - Muscular weakness [Unknown]
  - Fall [Unknown]
  - Drug dose omission [Unknown]
  - Intercepted medication error [Unknown]

NARRATIVE: CASE EVENT DATE: 201601
